FAERS Safety Report 10351148 (Version 1)
Quarter: 2014Q3

REPORT INFORMATION
  Report Type: Spontaneous
  Country: GB (occurrence: GB)
  Receive Date: 20140730
  Receipt Date: 20140730
  Transmission Date: 20150326
  Serious: Yes (Other)
  Sender: FDA-Public Use
  Company Number: GB-009507513-1407GBR013238

PATIENT
  Age: 64 Year
  Sex: Female
  Weight: 76 kg

DRUGS (10)
  1. SITAGLIPTIN PHOSPHATE [Suspect]
     Active Substance: SITAGLIPTIN PHOSPHATE
     Route: 048
     Dates: start: 20140428
  2. OMACOR [Concomitant]
     Active Substance: OMEGA-3-ACID ETHYL ESTERS
     Dates: start: 20140224
  3. PIOGLITAZONE HYDROCHLORIDE. [Concomitant]
     Active Substance: PIOGLITAZONE HYDROCHLORIDE
     Dates: start: 20140326, end: 20140423
  4. ACETAMINOPHEN (+) DIHYDROCODEINE BITARTRATE [Concomitant]
     Dates: start: 20140422, end: 20140504
  5. AMLODIPINE [Concomitant]
     Active Substance: AMLODIPINE BESYLATE
     Dates: start: 20140224
  6. GLICLAZIDE [Concomitant]
     Active Substance: GLICLAZIDE
     Dates: start: 20140715
  7. FLOXACILLIN [Concomitant]
     Active Substance: FLUCLOXACILLIN
     Dates: start: 20140428, end: 20140505
  8. FLUVASTATIN SODIUM. [Concomitant]
     Active Substance: FLUVASTATIN SODIUM
     Dates: start: 20140630
  9. ASPIRIN. [Concomitant]
     Active Substance: ASPIRIN
     Dates: start: 20140224, end: 20140421
  10. FLUVASTATIN SODIUM. [Concomitant]
     Active Substance: FLUVASTATIN SODIUM
     Dates: start: 20140422, end: 20140520

REACTIONS (1)
  - Paraesthesia [Unknown]

NARRATIVE: CASE EVENT DATE: 20140715
